FAERS Safety Report 20549205 (Version 1)
Quarter: 2022Q1

REPORT INFORMATION
  Report Type: Other
  Country: MY (occurrence: MY)
  Receive Date: 20220303
  Receipt Date: 20220303
  Transmission Date: 20220423
  Serious: Yes (Other)
  Sender: FDA-Public Use
  Company Number: MY-BoehringerIngelheim-2022-BI-156397

PATIENT

DRUGS (2)
  1. ALTEPLASE [Suspect]
     Active Substance: ALTEPLASE
     Indication: Peritonitis bacterial
     Route: 050
  2. ALTEPLASE [Suspect]
     Active Substance: ALTEPLASE
     Indication: Prophylaxis

REACTIONS (1)
  - Peritoneal dialysis complication [Recovered/Resolved]
